FAERS Safety Report 10492088 (Version 1)
Quarter: 2014Q4

REPORT INFORMATION
  Report Type: Spontaneous
  Country: US (occurrence: US)
  Receive Date: 20141002
  Receipt Date: 20141002
  Transmission Date: 20150528
  Serious: No
  Sender: FDA-Public Use
  Company Number: US-GLAXOSMITHKLINE-A1065141A

PATIENT
  Age: 55 Year
  Sex: Female

DRUGS (14)
  1. PROTONIX [Concomitant]
     Active Substance: PANTOPRAZOLE SODIUM
  2. ASPIRIN. [Concomitant]
     Active Substance: ASPIRIN
  3. ALLEGRA [Concomitant]
     Active Substance: FEXOFENADINE HYDROCHLORIDE
  4. DILTIAZEM [Concomitant]
     Active Substance: DILTIAZEM
  5. GABAPENTIN. [Concomitant]
     Active Substance: GABAPENTIN
  6. ADVAIR HFA [Suspect]
     Active Substance: FLUTICASONE PROPIONATE\SALMETEROL XINAFOATE
     Indication: ASTHMA
     Dosage: 1PUFF TWICE PER DAY
     Route: 055
  7. SPIRIVA [Concomitant]
     Active Substance: TIOTROPIUM BROMIDE MONOHYDRATE
  8. ALPRAZOLAM. [Concomitant]
     Active Substance: ALPRAZOLAM
  9. CLARITIN [Concomitant]
     Active Substance: LORATADINE
  10. LEVOTHYROXINE [Concomitant]
     Active Substance: LEVOTHYROXINE
  11. TYLENOL WITH CODEINE [Concomitant]
     Active Substance: ACETAMINOPHEN\CODEINE PHOSPHATE
  12. MUCINEX [Concomitant]
     Active Substance: GUAIFENESIN
  13. CYMBALTA [Concomitant]
     Active Substance: DULOXETINE HYDROCHLORIDE
  14. UNKNOWN NOSESPRAY [Concomitant]

REACTIONS (2)
  - Upper-airway cough syndrome [Unknown]
  - Dysphonia [Not Recovered/Not Resolved]
